FAERS Safety Report 25768136 (Version 1)
Quarter: 2025Q3

REPORT INFORMATION
  Report Type: Spontaneous
  Country: US (occurrence: US)
  Receive Date: 20250905
  Receipt Date: 20250905
  Transmission Date: 20251021
  Serious: No
  Sender: DOMPE FARMACEUTICI
  Company Number: US-FARMAPROD-202506-1835

PATIENT
  Sex: Female

DRUGS (7)
  1. OXERVATE [Suspect]
     Active Substance: CENEGERMIN-BKBJ
     Indication: Neurotrophic keratopathy
     Route: 047
     Dates: start: 20250527
  2. LINZESS [Concomitant]
     Active Substance: LINACLOTIDE
  3. SIMVASTATIN [Concomitant]
     Active Substance: SIMVASTATIN
  4. TEMAZEPAM [Concomitant]
     Active Substance: TEMAZEPAM
  5. MOXIFLOXACIN [Concomitant]
     Active Substance: MOXIFLOXACIN
  6. ERYTHROMYCIN [Concomitant]
     Active Substance: ERYTHROMYCIN
  7. NEOMYCIN-POLYMYXIN-DEXAMETH [Concomitant]

REACTIONS (3)
  - Eye pain [Unknown]
  - Eye irritation [Unknown]
  - Paraesthesia [Unknown]
